FAERS Safety Report 8376426-0 (Version None)
Quarter: 2012Q2

REPORT INFORMATION
  Report Type: 
  Country: None (occurrence: None)
  Receive Date: 20120522
  Receipt Date: 20120516
  Transmission Date: 20120825
  Serious: Yes (Hospitalization)
  Sender: FDA-Public Use
  Company Number: PHHO2012PH007174

PATIENT
  Sex: Male
  Weight: 76 kg

DRUGS (10)
  1. BLINDED NO TREATMENT RECEIVED [Suspect]
     Dosage: DOUBLE BLINDED (DOSE REDUCED TO LEVEL 2)
     Route: 048
     Dates: start: 20120510
  2. BLINDED NO TREATMENT RECEIVED [Suspect]
     Indication: CARDIAC FAILURE CHRONIC
     Dosage: DOUBLE BLINDED
     Route: 048
     Dates: start: 20120104, end: 20120502
  3. VALSARTAN [Suspect]
     Dosage: DOUBLE BLINDED
     Route: 048
     Dates: start: 20120507
  4. BLINDED NO TREATMENT RECEIVED [Suspect]
     Dosage: DOUBLE BLINDED
     Route: 048
     Dates: start: 20120507
  5. VALSARTAN [Suspect]
     Dosage: DOUBLE BLINDED (DOSE REDUCED TO LEVEL 2)
     Route: 048
     Dates: start: 20120510
  6. ENALAPRIL MALEATE [Suspect]
     Dosage: DOUBLE BLINDED
     Route: 048
     Dates: start: 20120507
  7. VALSARTAN [Suspect]
     Indication: CARDIAC FAILURE CHRONIC
     Dosage: DOUBLE BLINDED
     Route: 048
     Dates: start: 20120104, end: 20120502
  8. ENALAPRIL MALEATE [Suspect]
     Dosage: DOUBLE BLINDED (DOSE REDUCED TO LEVEL 2)
     Route: 048
     Dates: start: 20120510
  9. ASPIRIN [Suspect]
     Indication: DRUG THERAPY
     Dosage: UNK
  10. ENALAPRIL MALEATE [Suspect]
     Indication: CARDIAC FAILURE CHRONIC
     Dosage: DOUBLE BLINDED
     Route: 048
     Dates: start: 20120104, end: 20120502

REACTIONS (3)
  - CARDIAC FAILURE ACUTE [None]
  - ACUTE PRERENAL FAILURE [None]
  - PNEUMONIA [None]
